FAERS Safety Report 9160137 (Version 8)
Quarter: 2013Q3

REPORT INFORMATION
  Report Type: Report from Study
  Country: NZ (occurrence: NZ)
  Receive Date: 20130313
  Receipt Date: 20130910
  Transmission Date: 20140515
  Serious: Yes (Hospitalization)
  Sender: FDA-Public Use
  Company Number: NZ-GENZYME-MIPO-1000404

PATIENT
  Age: 54 Year
  Sex: Female
  Weight: 84.3 kg

DRUGS (23)
  1. MIPOMERSEN [Suspect]
     Indication: TYPE IIA HYPERLIPIDAEMIA
     Dosage: 70 MG, TIW
     Route: 058
     Dates: start: 20120822
  2. OMEPRAZOLE [Concomitant]
     Indication: GASTROOESOPHAGEAL REFLUX DISEASE
     Dosage: 20 MG, QD
     Route: 048
     Dates: start: 2002
  3. TEGRETOL [Concomitant]
     Indication: MIGRAINE
     Dosage: 1 G, QD
     Route: 048
     Dates: start: 1997
  4. AMITRIPTYLINE [Concomitant]
     Indication: PELVIC PAIN
     Dosage: 25 MG, QD
     Route: 048
     Dates: start: 2001
  5. AMITRIPTYLINE [Concomitant]
     Dosage: 100 MG, QPM
     Route: 065
  6. CODALGIN PLUS [Concomitant]
     Indication: PELVIC PAIN
     Dosage: 2 TABS, PRN
     Route: 048
     Dates: start: 2012
  7. VENTOLIN [Concomitant]
     Indication: EMPHYSEMA
     Dosage: 2 PUFFS, PRN
     Route: 055
     Dates: start: 2001
  8. SPIRIVA [Concomitant]
     Indication: EMPHYSEMA
     Dosage: 18 MCG, QAM
     Route: 055
  9. ATORVASTATIN [Concomitant]
     Indication: DYSLIPIDAEMIA
     Dosage: 40 MG, QD
     Route: 048
     Dates: start: 2004
  10. NICOTINE [Concomitant]
     Indication: SMOKING CESSATION THERAPY
     Dosage: 21 MG, QAM
     Route: 062
  11. FLIXOTIDE [Concomitant]
     Indication: PRODUCT USED FOR UNKNOWN INDICATION
     Route: 065
  12. FLUOXETINE [Concomitant]
     Indication: PRODUCT USED FOR UNKNOWN INDICATION
     Dosage: 40 MG, QD
     Route: 065
  13. EPILIM [Concomitant]
     Indication: PRODUCT USED FOR UNKNOWN INDICATION
     Dosage: 500 MG, BID
     Route: 065
  14. PANTOPRAZOLE [Concomitant]
     Indication: PRODUCT USED FOR UNKNOWN INDICATION
     Dosage: 40 MG, QAM
     Route: 065
  15. METFORMIN [Concomitant]
     Indication: PRODUCT USED FOR UNKNOWN INDICATION
     Dosage: 500 MG, BID
     Route: 065
  16. HABITROL [Concomitant]
     Indication: PRODUCT USED FOR UNKNOWN INDICATION
     Route: 065
  17. SUMATRIPTAN [Concomitant]
     Indication: PRODUCT USED FOR UNKNOWN INDICATION
     Dosage: 100 MG, PRN
     Route: 065
  18. CO-CODAMOL [Concomitant]
     Indication: PRODUCT USED FOR UNKNOWN INDICATION
     Dosage: 8/500 MG, UNK
  19. MORPHINE [Concomitant]
     Indication: PRODUCT USED FOR UNKNOWN INDICATION
     Dosage: UNK
     Route: 065
  20. CODEINE [Concomitant]
     Indication: PAIN
     Dosage: 60 MG, QID
     Route: 065
  21. ZOPICLONE [Concomitant]
     Indication: PRODUCT USED FOR UNKNOWN INDICATION
     Dosage: 3.75 MG, PRN
     Route: 065
  22. DOCUSATE SODIUM [Concomitant]
     Indication: CONSTIPATION
     Dosage: 2 TABS, BID
     Route: 048
  23. FLUTICASONE [Concomitant]
     Indication: PRODUCT USED FOR UNKNOWN INDICATION
     Dosage: 2 PUFFS, BID
     Route: 055

REACTIONS (1)
  - Embolism venous [Not Recovered/Not Resolved]
